FAERS Safety Report 22254362 (Version 1)
Quarter: 2023Q2

REPORT INFORMATION
  Report Type: Report from Study
  Country: US (occurrence: US)
  Receive Date: 20230426
  Receipt Date: 20230426
  Transmission Date: 20230722
  Serious: Yes (Hospitalization)
  Sender: FDA-Public Use
  Company Number: US-PTC THERAPEUTICS INC.-US-2023PTC000526

PATIENT
  Sex: Male
  Weight: 104.31 kg

DRUGS (6)
  1. EMFLAZA [Suspect]
     Active Substance: DEFLAZACORT
     Indication: Duchenne muscular dystrophy
     Dosage: ONE AND ONE-HALF TABLETS (54 MG), QD
     Route: 048
  2. EMFLAZA [Suspect]
     Active Substance: DEFLAZACORT
     Indication: Becker^s muscular dystrophy
  3. METOPROLOL SUCCINATE [Concomitant]
     Active Substance: METOPROLOL SUCCINATE
     Indication: Product used for unknown indication
  4. OMEPRAZOLE [Concomitant]
     Active Substance: OMEPRAZOLE
     Indication: Product used for unknown indication
     Dosage: 100 PERCENT
  5. XYZAL [Concomitant]
     Active Substance: LEVOCETIRIZINE DIHYDROCHLORIDE
     Indication: Product used for unknown indication
     Dosage: 5 MG TABLET
  6. TELMISARTAN [Concomitant]
     Active Substance: TELMISARTAN
     Indication: Product used for unknown indication
     Dosage: 20 MG TABLET

REACTIONS (3)
  - Asthenia [Unknown]
  - Pneumonia [Unknown]
  - Product use issue [Unknown]
